FAERS Safety Report 6068201-7 (Version None)
Quarter: 2009Q1

REPORT INFORMATION
  Report Type: 
  Country: None (occurrence: None)
  Receive Date: 20090206
  Receipt Date: 20090126
  Transmission Date: 20090719
  Serious: Yes (Hospitalization, Other)
  Sender: FDA-Public Use
  Company Number: FR-NOVOPROD-276206

PATIENT
  Age: 26 Year
  Sex: Female
  Weight: 157 kg

DRUGS (8)
  1. NORDITROPIN [Suspect]
     Indication: GROWTH HORMONE DEFICIENCY
     Dosage: .8 MG, QD
     Route: 058
     Dates: start: 20031208
  2. LEVEMIR [Concomitant]
     Dosage: 18 IU, QD
     Route: 058
     Dates: start: 20061201
  3. GLUCOPHAGE [Concomitant]
     Dosage: 1700 MG, QD
     Route: 048
  4. DIAMICRON [Concomitant]
     Dosage: 30 MG, QD
     Route: 048
  5. HYDROCORTISONE [Concomitant]
     Dosage: 15 MG, QD
     Route: 048
     Dates: start: 19910801
  6. MINIRIN [Concomitant]
     Dosage: .6 MG, QD
     Route: 048
     Dates: start: 20031208
  7. LEVOTHYROX [Concomitant]
     Dosage: 175 UG, QD
     Route: 048
  8. SURGESTONE [Concomitant]
     Dosage: 9.75 MG, QD
     Route: 048
     Dates: start: 20000828

REACTIONS (2)
  - ERYSIPELAS [None]
  - MYOSITIS [None]
